FAERS Safety Report 21238355 (Version 1)
Quarter: 2022Q3

REPORT INFORMATION
  Report Type: Spontaneous
  Country: IT (occurrence: IT)
  Receive Date: 20220822
  Receipt Date: 20220822
  Transmission Date: 20221027
  Serious: Yes (Hospitalization, Other)
  Sender: FDA-Public Use
  Company Number: None

PATIENT
  Sex: Male
  Weight: 2.5 kg

DRUGS (2)
  1. PHENYLEPHRINE HYDROCHLORIDE [Suspect]
     Active Substance: PHENYLEPHRINE HYDROCHLORIDE
     Indication: Eye lubrication therapy
     Dosage: THRICE, ONCE  EVERY TEN MINUTES
     Route: 065
  2. TROPICAMIDE [Suspect]
     Active Substance: TROPICAMIDE
     Indication: Eye lubrication therapy
     Dosage: THRICE, ONCE  EVERY TEN MINUTES
     Route: 065

REACTIONS (3)
  - Apnoea [Recovered/Resolved]
  - Sinus bradycardia [Recovered/Resolved]
  - Product use issue [Unknown]
